FAERS Safety Report 10364997 (Version 1)
Quarter: 2014Q3

REPORT INFORMATION
  Report Type: Spontaneous
  Country: US (occurrence: US)
  Receive Date: 20140806
  Receipt Date: 20140806
  Transmission Date: 20150326
  Serious: No
  Sender: FDA-Public Use
  Company Number: US-GLAXOSMITHKLINE-A1054287A

PATIENT
  Age: 78 Year
  Sex: Female

DRUGS (7)
  1. ADVAIR HFA [Suspect]
     Active Substance: FLUTICASONE PROPIONATE\SALMETEROL XINAFOATE
     Indication: ASTHMA
     Dosage: 1PUFF TWICE PER DAY
     Route: 055
     Dates: start: 2011
  2. NASONEX [Concomitant]
     Active Substance: MOMETASONE FUROATE
  3. PROVENTIL [Concomitant]
     Active Substance: ALBUTEROL
  4. SPIRIVA [Concomitant]
     Active Substance: TIOTROPIUM BROMIDE MONOHYDRATE
  5. NEBULIZER [Concomitant]
     Active Substance: UNSPECIFIED INGREDIENT
  6. BLOOD PRESSURE MEDICATION [Concomitant]
     Active Substance: UNSPECIFIED INGREDIENT
  7. SINGULAIR [Concomitant]
     Active Substance: MONTELUKAST SODIUM

REACTIONS (5)
  - Dyspnoea exertional [Unknown]
  - Nasal congestion [Unknown]
  - Secretion discharge [Unknown]
  - Wheezing [Unknown]
  - Dyspnoea [Unknown]

NARRATIVE: CASE EVENT DATE: 201310
